FAERS Safety Report 9741978 (Version 2)
Quarter: 2013Q4

REPORT INFORMATION
  Report Type: Spontaneous
  Country: US (occurrence: US)
  Receive Date: 20131210
  Receipt Date: 20131223
  Transmission Date: 20140711
  Serious: No
  Sender: FDA-Public Use
  Company Number: US-PFIZER INC-2013348212

PATIENT
  Age: 58 Year
  Sex: Female
  Weight: 90.25 kg

DRUGS (2)
  1. CELEBREX [Suspect]
     Indication: ARTHRITIS
     Dosage: 200 MG, 2X/DAY
  2. NORVASC [Concomitant]
     Indication: HYPERTENSION
     Dosage: 40 MG, 1X/DAY

REACTIONS (1)
  - Osteopenia [Unknown]
